FAERS Safety Report 16373983 (Version 2)
Quarter: 2022Q4

REPORT INFORMATION
  Report Type: Report from Study
  Country: BE (occurrence: BE)
  Receive Date: 20190530
  Receipt Date: 20221006
  Transmission Date: 20230112
  Serious: Yes (Other)
  Sender: FDA-Public Use
  Company Number: BE-INCYTE CORPORATION-2018IN012118

PATIENT
  Age: 72 Year
  Sex: Female

DRUGS (1)
  1. PONATINIB [Suspect]
     Active Substance: PONATINIB
     Indication: Philadelphia positive acute lymphocytic leukaemia
     Dosage: 15 MILLIGRAM, QD
     Route: 048
     Dates: start: 20150812, end: 20161214

REACTIONS (6)
  - Coeliac artery stenosis [Recovered/Resolved]
  - Mesenteric artery stenosis [Recovered/Resolved]
  - Renal artery stenosis [Recovered/Resolved]
  - Peripheral artery occlusion [Recovered/Resolved]
  - Peripheral artery stenosis [Recovered/Resolved]
  - Angiopathy [Recovered/Resolved]

NARRATIVE: CASE EVENT DATE: 20161214
